FAERS Safety Report 19421257 (Version 1)
Quarter: 2021Q2

REPORT INFORMATION
  Report Type: Other
  Country: IE (occurrence: IE)
  Receive Date: 20210616
  Receipt Date: 20210616
  Transmission Date: 20210717
  Serious: Yes (Other)
  Sender: FDA-Public Use
  Company Number: IE-ACI HEALTHCARE LIMITED-2112785

PATIENT
  Age: 36 Year
  Sex: Male

DRUGS (3)
  1. VALPORIC ACID [Concomitant]
     Active Substance: VALPROIC ACID
     Route: 065
  2. LAMOTRIGINE. [Concomitant]
     Active Substance: LAMOTRIGINE
     Route: 065
  3. LEVETIRACETAM. [Suspect]
     Active Substance: LEVETIRACETAM
     Indication: FRONTAL LOBE EPILEPSY
     Route: 065

REACTIONS (1)
  - Seizure [Unknown]
